FAERS Safety Report 4716779-5 (Version None)
Quarter: 2005Q3

REPORT INFORMATION
  Report Type: 
  Country: None (occurrence: None)
  Receive Date: 20050714
  Receipt Date: 20050629
  Transmission Date: 20060218
  Serious: Yes (Hospitalization)
  Sender: FDA-Public Use
  Company Number: 032-12

PATIENT
  Age: 53 Year
  Sex: Male

DRUGS (13)
  1. TEVETEN [Suspect]
     Indication: HYPERTENSION
     Dosage: 600 MG UNK; PO
     Route: 048
     Dates: start: 20010804
  2. TEVETEN [Suspect]
     Indication: THROMBOSIS PROPHYLAXIS
     Dosage: 600 MG UNK; PO
     Route: 048
     Dates: start: 20010804
  3. CYCLOSPORINE [Concomitant]
  4. MYOCOPHENOLATE MOFETIL [Concomitant]
  5. PREDNISOLONE [Concomitant]
  6. CALCIUM GLUCONATE [Concomitant]
  7. VITAMIN D3 [Concomitant]
  8. MAGNESIUM HYDROGEN ASPARTATE [Concomitant]
  9. ASPIRIN [Concomitant]
  10. SPIRONOLACTONE [Concomitant]
  11. HYDROCHLOROTHIAZIDE [Concomitant]
  12. PRAVASTATIN SODIUM [Concomitant]
  13. POTASSIUM CHLORIDE [Concomitant]

REACTIONS (3)
  - CONDUCTION DISORDER [None]
  - DISEASE RECURRENCE [None]
  - SYNCOPE [None]
